FAERS Safety Report 8909165 (Version 1)
Quarter: 2012Q4

REPORT INFORMATION
  Report Type: Spontaneous
  Country: KR (occurrence: None)
  Receive Date: 20121107
  Receipt Date: 20121107
  Transmission Date: 20130627
  Serious: Yes (Other)
  Sender: FDA-Public Use
  Company Number: CIP-2012-00393

PATIENT

DRUGS (3)
  1. EPIRUBICIN [Suspect]
     Indication: GASTRIC CANCER
     Dosage: 50 mg/m2 daily 1; repeated every 21 days, intravenous
     Route: 042
  2. OXALIPLATIN [Suspect]
     Indication: GASTRIC CANCER
     Dosage: 130 mg/m2 day 1; repeated every 21 days, Intravenous
     Route: 042
  3. GIMERACIL\OTERACIL\TEGAFUR [Suspect]
     Indication: GASTRIC CANCER
     Dosage: 40 mg/m2, 2x daily days 1-14; repeated every 21 day, Oral
     Route: 048

REACTIONS (1)
  - Peripheral sensory neuropathy [None]
